FAERS Safety Report 11340919 (Version 1)
Quarter: 2015Q3

REPORT INFORMATION
  Report Type: Spontaneous
  Country: US (occurrence: US)
  Receive Date: 20150805
  Receipt Date: 20150805
  Transmission Date: 20151125
  Serious: No
  Sender: FDA-Public Use
  Company Number: US-JNJFOC-20150401700

PATIENT

DRUGS (1)
  1. KETOCONAZOLE. [Suspect]
     Active Substance: KETOCONAZOLE
     Indication: PRODUCT USED FOR UNKNOWN INDICATION
     Dosage: ON THE FIFTH DAY OF TREATMENT
     Route: 065

REACTIONS (6)
  - Diarrhoea [Unknown]
  - Headache [Unknown]
  - Alanine aminotransferase increased [Unknown]
  - Dysmenorrhoea [Unknown]
  - Nausea [Unknown]
  - Aspartate aminotransferase increased [Unknown]
